FAERS Safety Report 6415592-0 (Version None)
Quarter: 2009Q4

REPORT INFORMATION
  Report Type: 
  Country: None (occurrence: None)
  Receive Date: 20091022
  Receipt Date: 20091009
  Transmission Date: 20100525
  Serious: Yes (Hospitalization, Other)
  Sender: FDA-Public Use
  Company Number: 230759J09USA

PATIENT
  Age: 58 Year
  Sex: Female

DRUGS (21)
  1. REBIF [Suspect]
     Indication: MULTIPLE SCLEROSIS
     Dosage: 44 MCG, 3 IN 1 WEEKS, SUBCUTANEOUS
     Route: 058
     Dates: start: 20060605
  2. GABAPENTIN [Concomitant]
  3. XANAX [Concomitant]
  4. SIMVASTATIN [Concomitant]
  5. EFFEXOR XR [Concomitant]
  6. LISINOPRIL AND HYDROCHLOROTHIAZIDE (PRINZIDE /00977901/) [Concomitant]
  7. METOPROL SUCCINATE EXTENDED RELEASE (METOPROLOL SUCCINATE) [Concomitant]
  8. NEXIUM [Concomitant]
  9. METFORMIN EXTENDED RELEASE (METFORMIN HYDROCHLORIDE) [Concomitant]
  10. PROVIGIL [Concomitant]
  11. REQUIP [Concomitant]
  12. ACTONEL [Concomitant]
  13. PREDNISONE [Concomitant]
  14. DARVOCET [Concomitant]
  15. DOXEPIN (DOXEPIN /00138001/) [Concomitant]
  16. HYDROXYZINE (HYDROXYZINE /00058401/) [Concomitant]
  17. VITAMIN D [Concomitant]
  18. MULTIVITAMIN (MULTIVITAMIN /00831701/) [Concomitant]
  19. VITAMIN B (VITAMIN B) [Concomitant]
  20. CALCIUM WITH D (CALCIUM D) [Concomitant]
  21. ASPIRIN [Concomitant]

REACTIONS (4)
  - ARTHROPATHY [None]
  - BREAST CANCER FEMALE [None]
  - MULTIPLE SCLEROSIS RELAPSE [None]
  - URTICARIA [None]
